FAERS Safety Report 4490303-7 (Version None)
Quarter: 2004Q4

REPORT INFORMATION
  Report Type: 
  Country: None (occurrence: None)
  Receive Date: 20041101
  Receipt Date: 20041006
  Transmission Date: 20050328
  Serious: Yes (Disabling, Other)
  Sender: FDA-Public Use
  Company Number: US-MERCK-0410USA00693

PATIENT
  Age: 45 Year
  Sex: Male
  Weight: 95 kg

DRUGS (15)
  1. VIOXX [Suspect]
     Indication: PAIN
     Route: 048
     Dates: start: 19990101
  2. ULTRAM [Concomitant]
     Indication: PAIN
     Route: 065
     Dates: start: 20000119
  3. LORCET-HD [Concomitant]
     Indication: PAIN
     Route: 065
  4. VIAGRA [Concomitant]
     Indication: ERECTILE DYSFUNCTION
     Route: 065
     Dates: start: 20010503
  5. NEURONTIN [Concomitant]
     Route: 065
     Dates: end: 20000620
  6. NEURONTIN [Concomitant]
     Route: 065
     Dates: start: 20000621
  7. PROZAC [Concomitant]
     Indication: ANXIETY
     Route: 065
     Dates: start: 20000911
  8. PROZAC [Concomitant]
     Indication: DEPRESSION
     Route: 065
     Dates: start: 20000911
  9. LORAZEPAM [Concomitant]
     Indication: ANXIETY
     Route: 065
     Dates: start: 20000911
  10. LORAZEPAM [Concomitant]
     Indication: DEPRESSION
     Route: 065
     Dates: start: 20000911
  11. HYDROCODONE BITARTRATE [Concomitant]
     Indication: PAIN
     Route: 065
  12. ALLEGRA [Concomitant]
     Route: 065
  13. ZOCOR [Concomitant]
     Route: 048
     Dates: end: 20021203
  14. ZOCOR [Concomitant]
     Route: 048
     Dates: start: 20021204
  15. LIPITOR [Concomitant]
     Route: 065

REACTIONS (18)
  - ANXIETY [None]
  - ARTHRALGIA [None]
  - DEPRESSION [None]
  - DISABILITY [None]
  - ERECTILE DYSFUNCTION [None]
  - FIBROMYALGIA [None]
  - INSOMNIA [None]
  - INTERVERTEBRAL DISC DISPLACEMENT [None]
  - LIP ULCERATION [None]
  - LIPOMA [None]
  - NASAL CONGESTION [None]
  - NECK PAIN [None]
  - PAIN [None]
  - PARANASAL SINUS HYPERSECRETION [None]
  - PERIRECTAL ABSCESS [None]
  - ROTATOR CUFF SYNDROME [None]
  - SINUS CONGESTION [None]
  - TOOTH LOSS [None]
